FAERS Safety Report 5971683-X (Version None)
Quarter: 2008Q4

REPORT INFORMATION
  Report Type: 
  Country: None (occurrence: None)
  Receive Date: 20081201
  Receipt Date: 20081121
  Transmission Date: 20090506
  Serious: Yes (Life-Threatening, Hospitalization)
  Sender: FDA-Public Use
  Company Number: JP-SANOFI-SYNTHELABO-A01200810952

PATIENT
  Sex: Female

DRUGS (21)
  1. PLAVIX [Suspect]
     Indication: PERCUTANEOUS CORONARY INTERVENTION
     Route: 048
     Dates: start: 20080905, end: 20080905
  2. PLAVIX [Suspect]
     Indication: STENT PLACEMENT
     Route: 048
     Dates: start: 20080905, end: 20080905
  3. PLAVIX [Suspect]
     Indication: THROMBOSIS PROPHYLAXIS
     Route: 048
     Dates: start: 20080905, end: 20080905
  4. ACTOS [Concomitant]
     Indication: DIABETES MELLITUS
     Dosage: UNK
     Route: 065
     Dates: end: 20080901
  5. VASELINE [Concomitant]
     Indication: DRUG USE FOR UNKNOWN INDICATION
     Dosage: UNK
     Route: 065
  6. CEFAMEZINE [Suspect]
     Indication: DRUG USE FOR UNKNOWN INDICATION
     Dosage: UNK
     Route: 065
  7. TICLOPIDINE HCL [Suspect]
     Indication: PERCUTANEOUS CORONARY INTERVENTION
     Dosage: UNK
     Route: 065
     Dates: end: 20080904
  8. TICLOPIDINE HCL [Suspect]
     Indication: STENT PLACEMENT
     Dosage: UNK
     Route: 065
     Dates: end: 20080904
  9. TICLOPIDINE HCL [Suspect]
     Indication: THROMBOSIS PROPHYLAXIS
     Dosage: UNK
     Route: 065
     Dates: end: 20080904
  10. CEFDINIR [Concomitant]
     Indication: DRUG USE FOR UNKNOWN INDICATION
     Dosage: UNK
     Route: 065
     Dates: end: 20080901
  11. MUCOSTA [Concomitant]
     Indication: GASTRIC ULCER
     Route: 065
     Dates: start: 20080826, end: 20080905
  12. FLOMOX [Concomitant]
     Indication: CATHETER PLACEMENT
     Route: 065
     Dates: start: 20080827, end: 20080831
  13. OLMETEC [Concomitant]
     Indication: HYPERTENSION
     Route: 065
     Dates: start: 20080827, end: 20080904
  14. IOPAMIDOL [Suspect]
     Indication: DRUG USE FOR UNKNOWN INDICATION
     Dosage: UNK
     Route: 065
     Dates: start: 20080820
  15. MEVALOTIN [Concomitant]
     Indication: HYPERLIPIDAEMIA
     Dosage: UNK
     Route: 065
     Dates: start: 20080827, end: 20080904
  16. TAKEPRON [Suspect]
     Indication: GASTRIC ULCER
     Dosage: UNK
     Route: 065
     Dates: start: 20080827, end: 20080905
  17. MILMAG [Concomitant]
     Indication: CONSTIPATION
     Route: 065
     Dates: start: 20080826, end: 20080904
  18. ASPIRIN [Suspect]
     Indication: MYOCARDIAL INFARCTION
     Route: 048
     Dates: start: 20080825, end: 20080905
  19. SIGMART [Concomitant]
     Indication: ANGINA PECTORIS
     Route: 065
     Dates: start: 20080826, end: 20080903
  20. ARTIST [Suspect]
     Indication: HYPERTENSION
     Route: 065
     Dates: start: 20080827, end: 20080901
  21. GLYCORAN [Concomitant]
     Indication: DIABETES MELLITUS
     Dosage: UNK
     Route: 065
     Dates: start: 20080829, end: 20080901

REACTIONS (1)
  - ACUTE GENERALISED EXANTHEMATOUS PUSTULOSIS [None]
